FAERS Safety Report 7744764-8 (Version None)
Quarter: 2011Q3

REPORT INFORMATION
  Report Type: 
  Country: None (occurrence: None)
  Receive Date: 20110912
  Receipt Date: 20110912
  Transmission Date: 20111222
  Serious: Yes (Other)
  Sender: FDA-Public Use
  Company Number: None

PATIENT
  Age: 48 Year
  Sex: Female
  Weight: 70.306 kg

DRUGS (1)
  1. SOLU-MEDROL [Suspect]
     Indication: MUSCULOSKELETAL PAIN
     Dosage: 125MG/2ML
     Route: 030
     Dates: start: 20110909, end: 20110909

REACTIONS (3)
  - HYPOAESTHESIA [None]
  - MOVEMENT DISORDER [None]
  - ASTHENIA [None]
